FAERS Safety Report 13160403 (Version 1)
Quarter: 2017Q1

REPORT INFORMATION
  Report Type: Spontaneous
  Country: AU (occurrence: AU)
  Receive Date: 20170127
  Receipt Date: 20170127
  Transmission Date: 20170428
  Serious: Yes (Other)
  Sender: FDA-Public Use
  Company Number: PHHY2017AU009436

PATIENT
  Sex: Male

DRUGS (3)
  1. ESCITALOPRAM [Suspect]
     Active Substance: ESCITALOPRAM OXALATE
     Indication: SCHIZOPHRENIA
     Dosage: 40 MG, UNK
     Route: 065
  2. OLANZAPINE. [Suspect]
     Active Substance: OLANZAPINE
     Indication: SCHIZOPHRENIA
     Dosage: 20 MG, UNK
     Route: 065
  3. PALIPERIDONE. [Suspect]
     Active Substance: PALIPERIDONE
     Indication: SCHIZOPHRENIA
     Dosage: 150 MG, UNK
     Route: 065

REACTIONS (2)
  - Ejection fraction decreased [Unknown]
  - Hepatic function abnormal [Unknown]
